FAERS Safety Report 12934280 (Version 2)
Quarter: 2016Q4

REPORT INFORMATION
  Report Type: Report from Study
  Country: US (occurrence: US)
  Receive Date: 20161111
  Receipt Date: 20161223
  Transmission Date: 20170207
  Serious: Yes (Hospitalization)
  Sender: FDA-Public Use
  Company Number: US-SA-2016SA189158

PATIENT
  Age: 75 Year
  Sex: Female

DRUGS (12)
  1. TIZANIDINE. [Concomitant]
     Active Substance: TIZANIDINE
  2. LEMTRADA [Suspect]
     Active Substance: ALEMTUZUMAB
     Indication: RELAPSING-REMITTING MULTIPLE SCLEROSIS
     Route: 041
     Dates: start: 20161003, end: 20161007
  3. LEVAQUIN [Concomitant]
     Active Substance: LEVOFLOXACIN
     Dates: end: 20161209
  4. MEMANTINE. [Concomitant]
     Active Substance: MEMANTINE
     Indication: DEMENTIA
  5. DEPAKOTE [Concomitant]
     Active Substance: DIVALPROEX SODIUM
     Dates: end: 20161222
  6. NYSTATIN. [Concomitant]
     Active Substance: NYSTATIN
     Dosage: DOSE: 100,000; 4-6CC SWISH AND SWALL
     Dates: end: 20161212
  7. SERTRALINE [Concomitant]
     Active Substance: SERTRALINE HYDROCHLORIDE
  8. DONEPEZIL. [Concomitant]
     Active Substance: DONEPEZIL
     Indication: DEMENTIA
  9. NUVIGIL [Concomitant]
     Active Substance: ARMODAFINIL
     Dates: end: 20161109
  10. HYDROXYZINE [Concomitant]
     Active Substance: HYDROXYZINE\HYDROXYZINE HYDROCHLORIDE
  11. DIFLUCAN [Concomitant]
     Active Substance: FLUCONAZOLE
     Route: 048
     Dates: end: 20161212
  12. NAMZARIC [Concomitant]
     Active Substance: DONEPEZIL HYDROCHLORIDE\MEMANTINE HYDROCHLORIDE

REACTIONS (37)
  - Cardiac murmur [Recovered/Resolved]
  - Confusional state [Recovered/Resolved]
  - Glycosylated haemoglobin increased [Unknown]
  - Haematocrit decreased [Unknown]
  - Mean cell haemoglobin decreased [Unknown]
  - Red cell distribution width increased [Unknown]
  - Monocyte count increased [Unknown]
  - Peripheral swelling [Recovering/Resolving]
  - Blood urine present [Unknown]
  - Nitrite urine present [Unknown]
  - General physical health deterioration [Unknown]
  - Dehydration [Unknown]
  - Aspartate aminotransferase increased [Unknown]
  - Monocyte percentage increased [Unknown]
  - Thyroxine increased [Unknown]
  - Lymphocyte percentage decreased [Unknown]
  - Mental status changes [Recovered/Resolved]
  - Pyrexia [Unknown]
  - Haemoglobin decreased [Unknown]
  - Leukocyturia [Unknown]
  - Asthenia [Unknown]
  - Metabolic encephalopathy [Recovered/Resolved]
  - White blood cell count decreased [Unknown]
  - Mean cell volume decreased [Unknown]
  - Prothrombin time prolonged [Unknown]
  - Lymphocyte count decreased [Unknown]
  - Gait disturbance [Unknown]
  - Protein total decreased [Unknown]
  - Blood albumin decreased [Unknown]
  - Thrombocytopenia [Unknown]
  - Platelet count decreased [Unknown]
  - Mean cell haemoglobin concentration decreased [Unknown]
  - Lethargy [Recovered/Resolved]
  - Escherichia urinary tract infection [Recovered/Resolved]
  - Walking aid user [Unknown]
  - Blood alkaline phosphatase increased [Unknown]
  - Urine ketone body present [Unknown]

NARRATIVE: CASE EVENT DATE: 2016
